FAERS Safety Report 14133909 (Version 2)
Quarter: 2019Q1

REPORT INFORMATION
  Report Type: Spontaneous
  Country: US (occurrence: US)
  Receive Date: 20171027
  Receipt Date: 20190312
  Transmission Date: 20190417
  Serious: No
  Sender: FDA-Public Use
  Company Number: US-PFIZER INC-2017461370

PATIENT
  Age: 63 Year
  Sex: Female

DRUGS (1)
  1. XELJANZ XR [Suspect]
     Active Substance: TOFACITINIB CITRATE
     Indication: RHEUMATOID ARTHRITIS
     Dosage: 11 MG, DAILY
     Route: 048
     Dates: start: 201708

REACTIONS (5)
  - Cough [Unknown]
  - Dry throat [Unknown]
  - Viral infection [Unknown]
  - Upper respiratory tract congestion [Unknown]
  - Nasal congestion [Unknown]

NARRATIVE: CASE EVENT DATE: 2017
